FAERS Safety Report 6731017-X (Version None)
Quarter: 2010Q2

REPORT INFORMATION
  Report Type: 
  Country: None (occurrence: None)
  Receive Date: 20100518
  Receipt Date: 20100507
  Transmission Date: 20101027
  Serious: Yes (Hospitalization, Other)
  Sender: FDA-Public Use
  Company Number: US-PURDUE-USA-2010-0043751

PATIENT
  Age: 92 Year
  Sex: Male

DRUGS (1)
  1. COLACE CAPSULES 100 MG [Suspect]
     Indication: CONSTIPATION
     Dosage: UNK
     Dates: start: 20100419

REACTIONS (12)
  - ABASIA [None]
  - ABDOMINAL PAIN [None]
  - ACUTE PRERENAL FAILURE [None]
  - ASTHENIA [None]
  - BLOOD CREATININE ABNORMAL [None]
  - COLITIS ISCHAEMIC [None]
  - FLUID IMBALANCE [None]
  - HAEMOGLOBIN DECREASED [None]
  - HYPOVOLAEMIC SHOCK [None]
  - MUCOUS STOOLS [None]
  - OVERDOSE [None]
  - WHITE BLOOD CELL COUNT INCREASED [None]
